FAERS Safety Report 4873943-2 (Version None)
Quarter: 2006Q1

REPORT INFORMATION
  Report Type: 
  Country: None (occurrence: None)
  Receive Date: 20060103
  Receipt Date: 20060103
  Transmission Date: 20060701
  Serious: Yes (Other)
  Sender: FDA-Public Use
  Company Number: None

PATIENT
  Sex: Female
  Weight: 68.0396 kg

DRUGS (1)
  1. NAMENDA [Suspect]
     Dosage: ONE TABLET  2 TIMES  A DAY PO
     Route: 048
     Dates: start: 20040226, end: 20040412

REACTIONS (4)
  - BALANCE DISORDER [None]
  - FEAR [None]
  - LETHARGY [None]
  - MENTAL STATUS CHANGES [None]
